FAERS Safety Report 6294261-4 (Version None)
Quarter: 2009Q3

REPORT INFORMATION
  Report Type: 
  Country: None (occurrence: None)
  Receive Date: 20090803
  Receipt Date: 20090414
  Transmission Date: 20100115
  Serious: No
  Sender: FDA-Public Use
  Company Number: A0778686A

PATIENT
  Age: 77 Year
  Sex: Female

DRUGS (1)
  1. NICORETTE (MINT) [Suspect]
     Dates: start: 20090410, end: 20090413

REACTIONS (2)
  - DRUG INEFFECTIVE [None]
  - NICOTINE DEPENDENCE [None]
